FAERS Safety Report 13759263 (Version 1)
Quarter: 2017Q3

REPORT INFORMATION
  Report Type: Report from Study
  Country: ES (occurrence: ES)
  Receive Date: 20170717
  Receipt Date: 20170717
  Transmission Date: 20171127
  Serious: Yes (Other)
  Sender: FDA-Public Use
  Company Number: ES-JNJFOC-20170701574

PATIENT

DRUGS (4)
  1. ABCIXIMAB [Suspect]
     Active Substance: ABCIXIMAB
     Indication: ACUTE MYOCARDIAL INFARCTION
     Route: 022
  2. TENECTEPLASE [Suspect]
     Active Substance: TENECTEPLASE
     Indication: PERCUTANEOUS CORONARY INTERVENTION
     Route: 022
  3. ABCIXIMAB [Suspect]
     Active Substance: ABCIXIMAB
     Indication: PERCUTANEOUS CORONARY INTERVENTION
     Route: 022
  4. TENECTEPLASE [Suspect]
     Active Substance: TENECTEPLASE
     Indication: ACUTE MYOCARDIAL INFARCTION
     Route: 022

REACTIONS (3)
  - Cardiac disorder [Unknown]
  - Incorrect route of drug administration [Unknown]
  - Off label use [Unknown]
